FAERS Safety Report 18549643 (Version 1)
Quarter: 2020Q4

REPORT INFORMATION
  Report Type: Spontaneous
  Country: US (occurrence: US)
  Receive Date: 20201126
  Receipt Date: 20201126
  Transmission Date: 20210114
  Serious: Yes (Death, Hospitalization, Other)
  Sender: FDA-Public Use
  Company Number: US-VELOXIS PHARMACEUTICALS-2020VELUS-000967

PATIENT
  Age: 66 Year
  Sex: Male

DRUGS (9)
  1. METHYLPREDNISOLONE. [Suspect]
     Active Substance: METHYLPREDNISOLONE
     Indication: IMMUNOSUPPRESSION
     Dosage: UNK
     Dates: start: 201809
  2. PREDNISONE. [Suspect]
     Active Substance: PREDNISONE
     Indication: IMMUNOSUPPRESSION
     Dosage: TAPER
     Route: 048
     Dates: start: 201809
  3. IMMUNOGLOBULINS (IMMUNOGLOBULINS) (IVIG) [Suspect]
     Active Substance: HUMAN IMMUNOGLOBULIN G
     Indication: IMMUNOSUPPRESSION
     Dosage: UNK
     Route: 042
     Dates: start: 201809
  4. ANTITHYMOCYTE IMMUNOGLOBULIN [Suspect]
     Active Substance: THYMOCYTE IMMUNE GLOBULIN NOS
     Indication: IMMUNOSUPPRESSION
     Dosage: 4 DF
     Dates: start: 201808
  5. SULFAMETHOXAZOLE;TRIMETHOPRIM [Concomitant]
     Active Substance: SULFAMETHOXAZOLE\TRIMETHOPRIM
     Indication: INFECTION PROPHYLAXIS
     Dosage: UNK
     Dates: start: 201808
  6. MYCOPHENOLATE MOFETIL. [Suspect]
     Active Substance: MYCOPHENOLATE MOFETIL
     Indication: IMMUNOSUPPRESSION
     Dosage: UNK
     Dates: start: 201808
  7. VALGANCICLOVIR. [Concomitant]
     Active Substance: VALGANCICLOVIR
     Indication: INFECTION PROPHYLAXIS
     Dosage: UNK
     Dates: start: 201808
  8. ENVARSUS XR [Suspect]
     Active Substance: TACROLIMUS
     Indication: IMMUNOSUPPRESSION
     Dosage: UNK
     Dates: start: 201808
  9. NYSTATIN. [Concomitant]
     Active Substance: NYSTATIN
     Indication: IMMUNOSUPPRESSION
     Dosage: SWISH AND SWALLOW
     Dates: start: 201808

REACTIONS (10)
  - Abscess [Recovering/Resolving]
  - Inflammation [Recovering/Resolving]
  - Neutrophilic dermatosis [Recovering/Resolving]
  - Chronic papillomatous dermatitis [Recovering/Resolving]
  - Disseminated trichosporonosis [Recovering/Resolving]
  - Pulmonary mass [Recovering/Resolving]
  - Postoperative wound infection [Recovered/Resolved]
  - Staphylococcal infection [Recovering/Resolving]
  - Dermatophytosis [Recovering/Resolving]
  - Trichophytosis [Recovering/Resolving]

NARRATIVE: CASE EVENT DATE: 201809
